FAERS Safety Report 6631176-3 (Version None)
Quarter: 2010Q1

REPORT INFORMATION
  Report Type: 
  Country: None (occurrence: None)
  Receive Date: 20100309
  Receipt Date: 20100302
  Transmission Date: 20100710
  Serious: Yes (Other)
  Sender: FDA-Public Use
  Company Number: 008016

PATIENT
  Age: 29 Year
  Sex: Male

DRUGS (2)
  1. KEPPRA [Suspect]
     Dosage: (500 MG   ORAL)
     Route: 048
     Dates: start: 20100201, end: 20100201
  2. EFFEXOR [Concomitant]

REACTIONS (2)
  - FALL [None]
  - VOMITING [None]
